FAERS Safety Report 18072736 (Version 1)
Quarter: 2020Q3

REPORT INFORMATION
  Report Type: Spontaneous
  Country: US (occurrence: US)
  Receive Date: 20200727
  Receipt Date: 20200727
  Transmission Date: 20201103
  Serious: Yes (Life-Threatening, Hospitalization)
  Sender: FDA-Public Use
  Company Number: None

PATIENT
  Age: 59 Year
  Sex: Female
  Weight: 60.75 kg

DRUGS (10)
  1. DEXILANT [Concomitant]
     Active Substance: DEXLANSOPRAZOLE
  2. SUMATRIPTAN. [Concomitant]
     Active Substance: SUMATRIPTAN
  3. TRAMADOL. [Concomitant]
     Active Substance: TRAMADOL
  4. GABAPENTIN. [Concomitant]
     Active Substance: GABAPENTIN
  5. AMLOPINE BESYLATE [Concomitant]
  6. PLAQUENIL [Concomitant]
     Active Substance: HYDROXYCHLOROQUINE SULFATE
  7. URSODIOL. [Concomitant]
     Active Substance: URSODIOL
  8. CEVIMELINE. [Concomitant]
     Active Substance: CEVIMELINE
  9. VOLTAREN [Concomitant]
     Active Substance: DICLOFENAC SODIUM
  10. HUMIRA [Suspect]
     Active Substance: ADALIMUMAB
     Indication: PSORIATIC ARTHROPATHY
     Dosage: ?          OTHER FREQUENCY:ONCE EVERY OTHER W;?
     Route: 058
     Dates: start: 20190306, end: 20191003

REACTIONS (2)
  - Colectomy [None]
  - Clostridium difficile infection [None]

NARRATIVE: CASE EVENT DATE: 20191101
